FAERS Safety Report 11281835 (Version 2)
Quarter: 2015Q3

REPORT INFORMATION
  Report Type: Spontaneous
  Country: JP (occurrence: JP)
  Receive Date: 20150717
  Receipt Date: 20150804
  Transmission Date: 20151125
  Serious: Yes (Death, Hospitalization)
  Sender: FDA-Public Use
  Company Number: JP-ASTRAZENECA-2015SE32407

PATIENT
  Age: 30727 Day
  Sex: Female
  Weight: 40 kg

DRUGS (17)
  1. IRESSA [Suspect]
     Active Substance: GEFITINIB
     Indication: LUNG ADENOCARCINOMA
     Route: 048
     Dates: start: 20141119, end: 20150109
  2. CONIEL [Concomitant]
     Active Substance: BENIDIPINE HYDROCHLORIDE
     Dosage: 4 MG DAILY AFTER BREAKFAST
     Route: 048
     Dates: start: 20141129, end: 20141130
  3. CONIEL [Concomitant]
     Active Substance: BENIDIPINE HYDROCHLORIDE
     Dosage: 4 MG DAILY AFTER BREAKFAST
     Route: 048
     Dates: start: 20150101, end: 20150124
  4. MICARDIS [Concomitant]
     Active Substance: TELMISARTAN
     Dosage: 40 MG DAILY, AFTER BREAKFAST
     Route: 048
     Dates: start: 20150101, end: 20150124
  5. HERBESSER [Concomitant]
     Active Substance: DILTIAZEM HYDROCHLORIDE
     Dosage: 30 MG, TWO TIMES A DAY AFTER BREAKFAST AND EVENING MEAL
     Route: 048
     Dates: start: 20141129, end: 20141130
  6. CARDIZEM [Concomitant]
     Active Substance: DILTIAZEM HYDROCHLORIDE
     Dosage: 15 MG, TWO TIMES A DAY AFTER BREAKFAST AND EVENING MEAL
     Route: 048
     Dates: start: 20141118, end: 20141118
  7. ZOLPIDEM TARTRATE. [Concomitant]
     Active Substance: ZOLPIDEM TARTRATE
     Indication: INSOMNIA
     Dosage: 2.5 MG DAILY, BEFORE BEDTIME
     Route: 048
     Dates: start: 20150101, end: 20150122
  8. LANDEL10 20 [Concomitant]
     Dosage: 10 MG DAILY AFTER BREAKFAST
     Route: 048
     Dates: start: 20141119, end: 20141129
  9. HERBESSER [Concomitant]
     Active Substance: DILTIAZEM HYDROCHLORIDE
     Dosage: 15 MG, TWO TIMES A DAY AFTER BREAKFAST AND EVENING MEAL
     Route: 048
     Dates: start: 20141123, end: 20141123
  10. MICARDIS [Concomitant]
     Active Substance: TELMISARTAN
     Dosage: 40 MG DAILY, AFTER BREAKFAST
     Route: 048
     Dates: start: 20141129, end: 20141130
  11. HERBESSER [Concomitant]
     Active Substance: DILTIAZEM HYDROCHLORIDE
     Dosage: 30 MG, TWO TIMES A DAY AFTER BREAKFAST AND EVENING MEAL
     Route: 048
     Dates: start: 20141124, end: 20141130
  12. ZOLPIDEM TARTRATE. [Concomitant]
     Active Substance: ZOLPIDEM TARTRATE
     Indication: INSOMNIA
     Route: 048
     Dates: start: 20141118, end: 20141118
  13. VALSARTAN. [Concomitant]
     Active Substance: VALSARTAN
     Dosage: 80 MG DAILY AFTER BREAKFAST
     Route: 048
     Dates: start: 20141119, end: 20141129
  14. ATORVASTATIN CALCIUM. [Concomitant]
     Active Substance: ATORVASTATIN CALCIUM
     Dosage: 5 MG DAILY, AFTER EVENING MEAL
     Route: 048
     Dates: start: 20141118, end: 20141129
  15. PAROXETINE [Concomitant]
     Active Substance: PAROXETINE\PAROXETINE HYDROCHLORIDE
     Dosage: 5 MG DAILY BEFORE BEDTIME
     Route: 048
     Dates: start: 20141118, end: 20141129
  16. HERBESSER [Concomitant]
     Active Substance: DILTIAZEM HYDROCHLORIDE
     Dosage: 30 MG, TWO TIMES A DAY AFTER BREAKFAST AND EVENING MEAL
     Route: 048
     Dates: start: 20150101, end: 20150124
  17. CARDIZEM [Concomitant]
     Active Substance: DILTIAZEM HYDROCHLORIDE
     Dosage: 30 MG, TWO TIMES A DAY AFTER BREAKFAST AND EVENING MEAL
     Route: 048
     Dates: start: 20141119, end: 20141122

REACTIONS (2)
  - Malignant neoplasm progression [Fatal]
  - Interstitial lung disease [Recovering/Resolving]

NARRATIVE: CASE EVENT DATE: 20150109
